FAERS Safety Report 10233178 (Version 1)
Quarter: 2014Q2

REPORT INFORMATION
  Report Type: Spontaneous
  Country: US (occurrence: US)
  Receive Date: 20140612
  Receipt Date: 20140612
  Transmission Date: 20141212
  Serious: No
  Sender: FDA-Public Use
  Company Number: US-B.I. PHARMACEUTICALS,INC./RIDGEFIELD-2014-BI-24870BP

PATIENT
  Age: 31 Year
  Sex: Male

DRUGS (2)
  1. COMBIVENT [Suspect]
     Indication: COUGH
     Dosage: STRENGTH: 20 MCG / 100 MCG; DAILY DOSE: 60 MCG/ 300 MCG
     Route: 055
     Dates: start: 20140602
  2. TESSALON [Concomitant]
     Route: 048

REACTIONS (5)
  - Dizziness [Recovered/Resolved]
  - Flushing [Recovered/Resolved]
  - Feeling hot [Recovered/Resolved]
  - Vision blurred [Recovered/Resolved]
  - Off label use [Unknown]
